FAERS Safety Report 13746420 (Version 4)
Quarter: 2018Q1

REPORT INFORMATION
  Report Type: Spontaneous
  Country: US (occurrence: US)
  Receive Date: 20170712
  Receipt Date: 20180216
  Transmission Date: 20180508
  Serious: No
  Sender: FDA-Public Use
  Company Number: US-PFIZER INC-2017296244

PATIENT
  Age: 76 Year
  Sex: Female
  Weight: 77.11 kg

DRUGS (8)
  1. ECOTRIN [Concomitant]
     Active Substance: ASPIRIN
     Dosage: 81 MG, DAILY
  2. LISINOPRIL. [Concomitant]
     Active Substance: LISINOPRIL
     Indication: BLOOD PRESSURE MANAGEMENT
     Dosage: 20 MG, ONCE A DAY
  3. TRAMADOL. [Concomitant]
     Active Substance: TRAMADOL
     Indication: PAIN
     Dosage: 50 MG, ONCE A DAY
     Dates: start: 2008
  4. CALCIUM PLUS D3 [Concomitant]
     Indication: BONE DISORDER
     Dosage: 1200MG, ONCE A DAY
  5. LATANOPROST. [Suspect]
     Active Substance: LATANOPROST
     Dosage: 1 DROP (GTT), IN BOTH EYES AT BEDTIME
     Dates: end: 20170706
  6. ESTRADIOL. [Concomitant]
     Active Substance: ESTRADIOL
     Indication: HOT FLUSH
     Dosage: 0.5 MG, ONCE A DAY
  7. LATANOPROST. [Suspect]
     Active Substance: LATANOPROST
     Indication: GLAUCOMA
     Dosage: 2X A DAY
     Dates: end: 20170622
  8. SYNTHROID [Concomitant]
     Active Substance: LEVOTHYROXINE SODIUM
     Indication: THYROID DISORDER
     Dosage: 125 UG, ONCE A DAY

REACTIONS (8)
  - Burning sensation [Recovered/Resolved]
  - Eye swelling [Recovered/Resolved]
  - Skin exfoliation [Recovered/Resolved]
  - Eye pain [Recovered/Resolved]
  - Off label use [Unknown]
  - Eye pruritus [Recovered/Resolved]
  - Blister [Recovered/Resolved]
  - Drug dose omission [Unknown]

NARRATIVE: CASE EVENT DATE: 20170620
